FAERS Safety Report 20617563 (Version 4)
Quarter: 2022Q2

REPORT INFORMATION
  Report Type: Report from Study
  Country: US (occurrence: US)
  Receive Date: 20220321
  Receipt Date: 20220512
  Transmission Date: 20220721
  Serious: Yes (Other)
  Sender: FDA-Public Use
  Company Number: US-NOVARTISTESTPH-NVSC2022US063394

PATIENT
  Age: 74 Year
  Sex: Female
  Weight: 56 kg

DRUGS (3)
  1. AFINITOR [Suspect]
     Active Substance: EVEROLIMUS
     Indication: Tuberous sclerosis complex
     Dosage: 10 MG
     Route: 048
     Dates: start: 202201, end: 20220309
  2. AVAPRO [Concomitant]
     Active Substance: IRBESARTAN
     Indication: Product used for unknown indication
     Dosage: 300 MG, QD
     Route: 048
  3. CARVENA [Concomitant]
     Indication: Product used for unknown indication
     Dosage: 125 MG, QD
     Route: 048

REACTIONS (5)
  - Thrombosis [Recovering/Resolving]
  - Deep vein thrombosis [Unknown]
  - Renal hamartoma [Unknown]
  - Peripheral swelling [Unknown]
  - Synovial cyst [Unknown]

NARRATIVE: CASE EVENT DATE: 20220215
